FAERS Safety Report 4907305-6 (Version None)
Quarter: 2006Q1

REPORT INFORMATION
  Report Type: 
  Country: None (occurrence: None)
  Receive Date: 20060208
  Receipt Date: 20060208
  Transmission Date: 20060701
  Serious: No
  Sender: FDA-Public Use
  Company Number: None

PATIENT
  Age: 57 Year
  Sex: Male
  Weight: 88.6 kg

DRUGS (5)
  1. HCTZ 12.5/LISINOPRIL 10 MG TABLETS [Suspect]
     Dosage: 1 TAB PO DAILY
     Dates: start: 20050225, end: 20051025
  2. IPRATROPIUM BROMIDE [Concomitant]
  3. OMEPRAZOLE [Concomitant]
  4. SERTRALINE HCL [Concomitant]
  5. RISPERIDONE [Concomitant]

REACTIONS (2)
  - SELF-MEDICATION [None]
  - SWELLING FACE [None]
